FAERS Safety Report 8893596 (Version 2)
Quarter: 2014Q1

REPORT INFORMATION
  Report Type: Spontaneous
  Country: US (occurrence: US)
  Receive Date: 20121107
  Receipt Date: 20140226
  Transmission Date: 20141002
  Serious: No
  Sender: FDA-Public Use
  Company Number: US-AMGEN-USASP2011061411

PATIENT
  Age: 57 Year
  Sex: Female
  Weight: 92.97 kg

DRUGS (5)
  1. ENBREL [Suspect]
     Indication: PRODUCT USED FOR UNKNOWN INDICATION
     Dosage: 50 MG, QWK
     Route: 058
  2. AVAPRO [Concomitant]
     Dosage: 150 MG, UNK
     Route: 065
  3. METFORMIN [Concomitant]
     Dosage: 500 MG, UNK
  4. VITAMIN D3 [Concomitant]
     Dosage: 5000 UNIT, UNK
     Route: 065
  5. FISH OIL [Concomitant]
     Dosage: UNK
     Route: 065

REACTIONS (4)
  - Headache [Unknown]
  - Skin sensitisation [Unknown]
  - Injection site pain [Unknown]
  - Psoriasis [Unknown]
